FAERS Safety Report 12709312 (Version 6)
Quarter: 2016Q4

REPORT INFORMATION
  Report Type: Report from Study
  Country: KR (occurrence: KR)
  Receive Date: 20160901
  Receipt Date: 20161128
  Transmission Date: 20170207
  Serious: Yes (Death, Hospitalization, Other)
  Sender: FDA-Public Use
  Company Number: PHHY2016KR119141

PATIENT
  Age: 80 Year
  Sex: Male
  Weight: 63.7 kg

DRUGS (1)
  1. VOTRIENT [Suspect]
     Active Substance: PAZOPANIB HYDROCHLORIDE
     Indication: RENAL CELL CARCINOMA
     Dosage: 800 MG, QD
     Route: 048
     Dates: start: 20160506, end: 20160520

REACTIONS (23)
  - Sinus arrhythmia [Unknown]
  - Diastolic dysfunction [Unknown]
  - Troponin T [Unknown]
  - Base excess decreased [Unknown]
  - PCO2 decreased [Unknown]
  - Blood calcium decreased [Unknown]
  - Pleural effusion [Fatal]
  - Electrocardiogram QT prolonged [Recovered/Resolved]
  - Heart rate increased [Recovered/Resolved]
  - Palpitations [Unknown]
  - Heart rate decreased [Unknown]
  - Bradycardia [Recovered/Resolved]
  - Ventricular extrasystoles [Recovered/Resolved]
  - Ventricular arrhythmia [Recovered/Resolved]
  - Blood bicarbonate decreased [Unknown]
  - Nausea [Unknown]
  - Chest discomfort [Fatal]
  - Supraventricular extrasystoles [Recovered/Resolved]
  - Atrial fibrillation [Recovered/Resolved]
  - Brain natriuretic peptide increased [Not Recovered/Not Resolved]
  - Dyspnoea [Fatal]
  - Sinus arrest [Recovered/Resolved]
  - Blood creatine phosphokinase MB [Unknown]

NARRATIVE: CASE EVENT DATE: 20160520
